FAERS Safety Report 7754187-3 (Version None)
Quarter: 2011Q3

REPORT INFORMATION
  Report Type: 
  Country: None (occurrence: None)
  Receive Date: 20110915
  Receipt Date: 20110902
  Transmission Date: 20111222
  Serious: Yes (Hospitalization)
  Sender: FDA-Public Use
  Company Number: US-SANOFI-AVENTIS-2011SA053232

PATIENT
  Age: 69 Year
  Sex: Male
  Weight: 90.91 kg

DRUGS (2)
  1. LANTUS [Suspect]
     Indication: TYPE 2 DIABETES MELLITUS
     Dosage: DOSE:50 UNIT(S)
     Route: 058
     Dates: start: 20010101
  2. NOVOLOG [Concomitant]

REACTIONS (2)
  - HAEMOGLOBIN INCREASED [None]
  - CEREBROVASCULAR ACCIDENT [None]
